FAERS Safety Report 8884295 (Version 1)
Quarter: 2012Q4

REPORT INFORMATION
  Report Type: Report from Study
  Country: JP (occurrence: JP)
  Receive Date: 20121102
  Receipt Date: 20121102
  Transmission Date: 20130627
  Serious: Yes (Hospitalization)
  Sender: FDA-Public Use
  Company Number: JP-009507513-2012SP036765

PATIENT
  Age: 69 Year
  Sex: Female
  Weight: 48 kg

DRUGS (12)
  1. PEGINTERFERON ALFA-2B [Suspect]
     Indication: HEPATITIS C
     Dosage: 1.5 ?g/kg, QW
     Route: 058
     Dates: start: 20120516, end: 20120522
  2. PEGINTERFERON ALFA-2B [Suspect]
     Dosage: 0.75 ?g/kg, QW
     Route: 058
     Dates: start: 20120530, end: 20120612
  3. REBETOL [Suspect]
     Indication: HEPATITIS C
     Dosage: 600 mg, QD
     Route: 048
     Dates: start: 20120516, end: 20120528
  4. REBETOL [Suspect]
     Dosage: 400 mg, QD
     Route: 048
     Dates: start: 20120529, end: 20120612
  5. TELAVIC [Suspect]
     Indication: HEPATITIS C
     Dosage: 1500 mg, QD
     Route: 048
     Dates: start: 20120516, end: 20120612
  6. METHYCOOL [Concomitant]
     Dosage: FORMULATION: POR
     Route: 048
  7. ALINAMIN F (FURSULTIAMINE HYDROCHLORIDE) [Concomitant]
     Dosage: FORMULATION: POR
     Route: 048
  8. CALBLOCK [Concomitant]
     Dosage: FORMULATION: POR
     Route: 048
  9. SELTOUCH [Concomitant]
     Dosage: FORMULATION: TAP
     Route: 061
     Dates: start: 20120521
  10. TAKEPRON [Concomitant]
     Indication: PROPHYLAXIS
     Dosage: 15 mg, QD
     Route: 048
     Dates: start: 20120518
  11. GASMOTIN [Concomitant]
     Indication: PROPHYLAXIS
     Dosage: 15 mg, QD
     Route: 048
     Dates: start: 20120518
  12. KENTON (VITAMIN E NICOTINATE) [Concomitant]
     Dosage: 400 mg, qd
     Route: 048

REACTIONS (4)
  - Vomiting [Recovered/Resolved]
  - Malaise [Recovered/Resolved]
  - Decreased appetite [Recovered/Resolved]
  - Nausea [Recovered/Resolved]
